FAERS Safety Report 4522662-0 (Version None)
Quarter: 2004Q4

REPORT INFORMATION
  Report Type: 
  Country: None (occurrence: None)
  Receive Date: 20041207
  Receipt Date: 20041122
  Transmission Date: 20050328
  Serious: No
  Sender: FDA-Public Use
  Company Number: 2004SE06603

PATIENT
  Age: 24 Month
  Sex: Male
  Weight: 12 kg

DRUGS (2)
  1. PULMICORT [Suspect]
     Indication: ASTHMA
     Dates: start: 20040915, end: 20041115
  2. BRICANYL [Concomitant]

REACTIONS (4)
  - ASTHMA [None]
  - CONDITION AGGRAVATED [None]
  - DRUG INEFFECTIVE [None]
  - PHARMACEUTICAL PRODUCT COMPLAINT [None]
